FAERS Safety Report 8593618-6 (Version None)
Quarter: 2012Q3

REPORT INFORMATION
  Report Type: 
  Country: None (occurrence: None)
  Receive Date: 20120814
  Receipt Date: 20120808
  Transmission Date: 20120928
  Serious: Yes (Other)
  Sender: FDA-Public Use
  Company Number: CA-ROCHE-1099497

PATIENT
  Sex: Female
  Weight: 78.088 kg

DRUGS (10)
  1. GABAPENTIN [Concomitant]
  2. ZOPICLONE [Concomitant]
  3. OXYCET [Concomitant]
  4. NAPROXEN [Concomitant]
  5. TRAZODONE HYDROCHLORIDE [Concomitant]
  6. SERTRALINE HYDROCHLORIDE [Concomitant]
  7. METHOTREXATE [Concomitant]
  8. RABEPRAZOLE SODIUM [Concomitant]
  9. FOLIC ACID [Concomitant]
  10. ACTEMRA [Suspect]
     Indication: RHEUMATOID ARTHRITIS
     Route: 042
     Dates: start: 20120727

REACTIONS (4)
  - LOSS OF CONSCIOUSNESS [None]
  - MALAISE [None]
  - HEADACHE [None]
  - RHEUMATOID ARTHRITIS [None]
